FAERS Safety Report 9051917 (Version 1)
Quarter: 2013Q1

REPORT INFORMATION
  Report Type: Spontaneous
  Country: US (occurrence: None)
  Receive Date: 20130130
  Receipt Date: 20130130
  Transmission Date: 20140127
  Serious: Yes (Hospitalization)
  Sender: FDA-Public Use
  Company Number: None

PATIENT
  Sex: Male
  Weight: 135.9 kg

DRUGS (1)
  1. INTRON A [Suspect]
     Dates: start: 20120210

REACTIONS (4)
  - Mental status changes [None]
  - Agitation [None]
  - Hypersexuality [None]
  - Belligerence [None]
